FAERS Safety Report 8879157 (Version 1)
Quarter: 2012Q4

REPORT INFORMATION
  Report Type: Spontaneous
  Country: US (occurrence: None)
  Receive Date: 20121026
  Receipt Date: 20121026
  Transmission Date: 20130627
  Serious: Yes (Life-Threatening, Hospitalization, Disabling)
  Sender: FDA-Public Use
  Company Number: None

PATIENT
  Age: 24 Year
  Sex: Female
  Weight: 68.04 kg

DRUGS (1)
  1. MIRENA [Suspect]

REACTIONS (7)
  - Ovarian cyst [None]
  - Syncope [None]
  - Urinary tract infection [None]
  - Cystitis [None]
  - Drug ineffective [None]
  - Pelvic pain [None]
  - Muscle spasms [None]
